FAERS Safety Report 8587449 (Version 3)
Quarter: 2014Q3

REPORT INFORMATION
  Report Type: Spontaneous
  Country: US (occurrence: US)
  Receive Date: 20120531
  Receipt Date: 20140724
  Transmission Date: 20150326
  Serious: Yes (Hospitalization, Other)
  Sender: FDA-Public Use
  Company Number: US-BAYER-2012-052622

PATIENT
  Age: 25 Year
  Sex: Female
  Weight: 57.6 kg

DRUGS (1)
  1. MIRENA [Suspect]
     Active Substance: LEVONORGESTREL
     Indication: CONTRACEPTION
     Dosage: 20 MCG/24HR, CONT
     Route: 015
     Dates: start: 20100330, end: 20101119

REACTIONS (10)
  - Injury [None]
  - Abortion [None]
  - Infection [None]
  - Quality of life decreased [None]
  - Device issue [None]
  - Emotional distress [None]
  - Device dislocation [None]
  - Drug ineffective [None]
  - Device dislocation [None]
  - Pregnancy with contraceptive device [None]

NARRATIVE: CASE EVENT DATE: 2010
